FAERS Safety Report 8167395 (Version 7)
Quarter: 2013Q1

REPORT INFORMATION
  Report Type: Report from Study
  Country: GB (occurrence: GB)
  Receive Date: 20111004
  Receipt Date: 20130208
  Transmission Date: 20140127
  Serious: Yes (Hospitalization)
  Sender: FDA-Public Use
  Company Number: GB-AMGEN-GBRCT2011050277

PATIENT
  Age: 52 Year
  Sex: Female
  Weight: 102.8 kg

DRUGS (16)
  1. DENOSUMAB [Suspect]
     Indication: BREAST CANCER
     Dosage: 120 MG, Q3WK
     Route: 058
     Dates: start: 20110816
  2. FLUOROURACIL [Concomitant]
     Dosage: 1000 MG, Q3WK
     Route: 042
     Dates: start: 20110719, end: 20110830
  3. CYCLOPHOSPHAMIDE [Concomitant]
     Dosage: 1000 MG, Q3WK
     Route: 042
     Dates: start: 20110719, end: 20110830
  4. EPIRUBICIN [Concomitant]
     Dosage: 200 MG, Q3WK
     Route: 042
     Dates: start: 20110719, end: 20110830
  5. DOCETAXEL [Concomitant]
     Dosage: 200 MG, Q3WK
     Route: 042
     Dates: start: 20110920
  6. AMLODIPINE [Concomitant]
     Route: 048
     Dates: start: 20050104
  7. ONDANSETRON [Concomitant]
     Dosage: 8 MG, UNK
     Route: 048
     Dates: start: 20110719, end: 20110831
  8. LISINOPRIL [Concomitant]
     Route: 048
     Dates: start: 20070618
  9. DOXAZOSIN [Concomitant]
     Route: 048
     Dates: start: 20110119, end: 20110923
  10. DIFFLAM [Concomitant]
     Dosage: 15 ML, UNK
     Route: 048
     Dates: start: 20110808, end: 20110814
  11. DEXAMETHASONE [Concomitant]
     Dosage: 4 MG, UNK
     Route: 048
     Dates: start: 20110719, end: 20110830
  12. METOCLOPRAMIDE [Concomitant]
     Dosage: 10 MG, UNK
     Route: 048
     Dates: start: 20110719, end: 20111109
  13. PEGFILGRASTIM [Concomitant]
     Route: 058
     Dates: start: 20110921, end: 20110921
  14. METFORMIN [Concomitant]
     Route: 048
     Dates: start: 20101122
  15. SIMVASTATIN [Concomitant]
     Route: 048
     Dates: start: 20070424, end: 20121205
  16. CALCICHEW D3 FORTE [Concomitant]
     Dosage: UNK
     Route: 048
     Dates: start: 20110816

REACTIONS (3)
  - Arthralgia [Recovered/Resolved]
  - Lethargy [Recovered/Resolved]
  - Neutropenic sepsis [Recovered/Resolved]
